FAERS Safety Report 7243861-3 (Version None)
Quarter: 2011Q1

REPORT INFORMATION
  Report Type: 
  Country: None (occurrence: None)
  Receive Date: 20110125
  Receipt Date: 20110119
  Transmission Date: 20110831
  Serious: Yes (Other)
  Sender: FDA-Public Use
  Company Number: A0892264A

PATIENT
  Sex: Female

DRUGS (3)
  1. CLINDAMYCIN [Suspect]
     Dates: start: 20101008, end: 20101015
  2. BIRTH CONTROL PILLS [Concomitant]
     Indication: CONTRACEPTION
     Dosage: .15MG PER DAY
     Route: 048
  3. ELTROMBOPAG [Suspect]
     Indication: IDIOPATHIC THROMBOCYTOPENIC PURPURA
     Dosage: 50MG PER DAY
     Route: 048
     Dates: start: 20100826

REACTIONS (5)
  - TREATMENT NONCOMPLIANCE [None]
  - DIARRHOEA [None]
  - ABDOMINAL PAIN [None]
  - HEPATIC ENZYME INCREASED [None]
  - DRUG INTERACTION [None]
